FAERS Safety Report 21627787 (Version 2)
Quarter: 2025Q1

REPORT INFORMATION
  Report Type: Spontaneous
  Country: US (occurrence: US)
  Receive Date: 20221122
  Receipt Date: 20250226
  Transmission Date: 20250408
  Serious: No
  Sender: KYOWA
  Company Number: US-KYOWAKIRIN-2022BKK018044

PATIENT

DRUGS (11)
  1. CRYSVITA [Suspect]
     Active Substance: BUROSUMAB-TWZA
     Indication: Phosphorus metabolism disorder
     Dosage: 70 MG, 1X/4 WEEKS (INJECT 1 VIAL OF 10 MG WITH 2 VIALS OF 30 MG)
     Route: 058
  2. CRYSVITA [Suspect]
     Active Substance: BUROSUMAB-TWZA
     Indication: Hereditary hypophosphataemic rickets
     Dosage: 70 MG, 1X/4 WEEKS (INJECT 2 ML (60 MG) ALONG WITH 10 MG FOR A TOTAL DAILY DOSE OF 70 MG
     Route: 058
  3. CRYSVITA [Suspect]
     Active Substance: BUROSUMAB-TWZA
     Indication: Phosphorus metabolism disorder
     Dosage: 70 MG, 1X/4 WEEKS (INJECT 1 VIAL OF 10 MG WITH 2 VIALS OF 30 MG)
     Route: 058
  4. CRYSVITA [Suspect]
     Active Substance: BUROSUMAB-TWZA
     Indication: Hereditary hypophosphataemic rickets
     Dosage: 70 MG, 1X/4 WEEKS (INJECT 2 ML (60 MG) ALONG WITH 10 MG FOR A TOTAL DAILY DOSE OF 70 MG)
     Route: 058
  5. FLURBIPROFEN [Concomitant]
     Active Substance: FLURBIPROFEN
     Indication: Product used for unknown indication
     Route: 065
  6. LIDOCAINE [Concomitant]
     Active Substance: LIDOCAINE
     Indication: Product used for unknown indication
     Route: 065
  7. ABACAVIR [Concomitant]
     Active Substance: ABACAVIR
     Indication: Product used for unknown indication
     Route: 065
  8. LOSARTAN POTASSIUM [Concomitant]
     Active Substance: LOSARTAN POTASSIUM
     Indication: Product used for unknown indication
     Route: 065
  9. AMLODIPINE BESYLATE [Concomitant]
     Active Substance: AMLODIPINE BESYLATE
     Indication: Product used for unknown indication
     Route: 065
  10. AMLODIPINE BESYLATE [Concomitant]
     Active Substance: AMLODIPINE BESYLATE
     Route: 065
  11. METFORMIN HYDROCHLORIDE [Concomitant]
     Active Substance: METFORMIN HYDROCHLORIDE
     Indication: Product used for unknown indication
     Route: 065

REACTIONS (5)
  - Visual impairment [Unknown]
  - Frustration tolerance decreased [Unknown]
  - Headache [Unknown]
  - Eye laser surgery [Unknown]
  - Therapy interrupted [Unknown]

NARRATIVE: CASE EVENT DATE: 20250219
